FAERS Safety Report 24051302 (Version 5)
Quarter: 2024Q4

REPORT INFORMATION
  Report Type: Spontaneous
  Country: US (occurrence: US)
  Receive Date: 20240704
  Receipt Date: 20241023
  Transmission Date: 20250115
  Serious: Yes (Hospitalization, Other)
  Sender: BIOVITRUM
  Company Number: US-BIOVITRUM-2024-US-009461

PATIENT
  Age: 90 Year
  Sex: Female

DRUGS (1)
  1. VONJO [Suspect]
     Active Substance: PACRITINIB
     Indication: Essential thrombocythaemia
     Dosage: TWICE A DAY
     Route: 048
     Dates: start: 20240612

REACTIONS (22)
  - Intentional product misuse [Not Recovered/Not Resolved]
  - Diarrhoea [Unknown]
  - Nausea [Unknown]
  - Asthenia [Unknown]
  - Dizziness [Unknown]
  - Loss of personal independence in daily activities [Unknown]
  - Depression [Unknown]
  - Gait disturbance [Unknown]
  - Back pain [Unknown]
  - Intentional dose omission [Unknown]
  - Accident [Unknown]
  - Emotional disorder [Unknown]
  - Dehydration [Unknown]
  - Thrombosis [Unknown]
  - Pulmonary embolism [Unknown]
  - Coagulopathy [Unknown]
  - Oedema peripheral [Unknown]
  - Immobile [Unknown]
  - Delirium [Unknown]
  - Platelet count abnormal [Unknown]
  - Urinary tract infection [Unknown]
  - Malaise [Unknown]

NARRATIVE: CASE EVENT DATE: 20240612
